FAERS Safety Report 18745803 (Version 1)
Quarter: 2021Q1

REPORT INFORMATION
  Report Type: Report from Study
  Country: None (occurrence: US)
  Receive Date: 20210115
  Receipt Date: 20210115
  Transmission Date: 20210419
  Serious: Yes (Other)
  Sender: FDA-Public Use
  Company Number: US-ABBVIE-21K-163-3727771-00

PATIENT

DRUGS (5)
  1. XELJANZ XR [Suspect]
     Active Substance: TOFACITINIB CITRATE
     Route: 048
     Dates: start: 202012
  2. CELEBREX [Concomitant]
     Active Substance: CELECOXIB
     Indication: PRODUCT USED FOR UNKNOWN INDICATION
  3. HYDROCHLOROTHIAZIDE. [Concomitant]
     Active Substance: HYDROCHLOROTHIAZIDE
     Indication: PRODUCT USED FOR UNKNOWN INDICATION
  4. HUMIRA [Suspect]
     Active Substance: ADALIMUMAB
     Indication: PRODUCT USED FOR UNKNOWN INDICATION
     Route: 058
  5. XELJANZ XR [Suspect]
     Active Substance: TOFACITINIB CITRATE
     Indication: RHEUMATOID ARTHRITIS
     Route: 048
     Dates: start: 201908, end: 2020

REACTIONS (11)
  - Migraine [Unknown]
  - Somnolence [Unknown]
  - Left ventricular dysfunction [Unknown]
  - Dizziness [Unknown]
  - Inflammation [Unknown]
  - Synovial cyst [Unknown]
  - Joint swelling [Not Recovered/Not Resolved]
  - Drug eruption [Unknown]
  - Posture abnormal [Unknown]
  - Gait disturbance [Unknown]
  - Bone disorder [Unknown]
